FAERS Safety Report 25339348 (Version 2)
Quarter: 2025Q2

REPORT INFORMATION
  Report Type: Spontaneous
  Country: US (occurrence: US)
  Receive Date: 20250521
  Receipt Date: 20250605
  Transmission Date: 20250717
  Serious: Yes (Hospitalization, Other)
  Sender: PROCTER AND GAMBLE
  Company Number: US-PROCTER+GAMBLE-PH25005392

PATIENT
  Age: 43 Year
  Sex: Female
  Weight: 54.43 kg

DRUGS (3)
  1. VICKS VAPOCOOL SORE THROAT [Suspect]
     Active Substance: BENZOCAINE\MENTHOL
     Indication: Oropharyngeal pain
     Dosage: 3 SPRAY, 1 /DAY (2 TO 3 SPRAY, 1 TIME)
     Route: 048
     Dates: start: 20250327, end: 20250327
  2. DIFLUCAN [Concomitant]
     Active Substance: FLUCONAZOLE
     Indication: Oropharyngeal pain
     Dates: start: 202503, end: 202503
  3. LEVOFLOXACIN [Concomitant]
     Active Substance: LEVOFLOXACIN
     Indication: Oropharyngeal pain
     Dates: start: 202503, end: 202503

REACTIONS (8)
  - Dyspnoea [Recovering/Resolving]
  - Pharyngeal swelling [Recovering/Resolving]
  - Obstructive airways disorder [Not Recovered/Not Resolved]
  - Epiglottitis [Not Recovered/Not Resolved]
  - Oropharyngeal discomfort [Not Recovered/Not Resolved]
  - Unevaluable event [Unknown]
  - Throat tightness [Not Recovered/Not Resolved]
  - Documented hypersensitivity to administered product [Recovering/Resolving]

NARRATIVE: CASE EVENT DATE: 20250327
